FAERS Safety Report 23967092 (Version 1)
Quarter: 2024Q2

REPORT INFORMATION
  Report Type: Spontaneous
  Country: NL (occurrence: None)
  Receive Date: 20240612
  Receipt Date: 20240612
  Transmission Date: 20240715
  Serious: Yes (Life-Threatening, Hospitalization)
  Sender: FDA-Public Use
  Company Number: 2024A135846

PATIENT
  Age: 47 Year
  Sex: Female
  Weight: 74 kg

DRUGS (2)
  1. ESOMEPRAZOLE [Suspect]
     Active Substance: ESOMEPRAZOLE
     Indication: Dyspepsia
     Dosage: 1 TO 2 PER DAY
     Dates: start: 20070413, end: 20240504
  2. ESOMEPRAZOLE [Suspect]
     Active Substance: ESOMEPRAZOLE
     Indication: Gastric ulcer
     Dosage: 1 TO 2 PER DAY
     Dates: start: 20070413, end: 20240504

REACTIONS (3)
  - Hypomagnesaemia [Recovering/Resolving]
  - Hypokalaemia [Recovering/Resolving]
  - Hypocalcaemia [Recovering/Resolving]
